FAERS Safety Report 8192660-7 (Version None)
Quarter: 2012Q1

REPORT INFORMATION
  Report Type: 
  Country: None (occurrence: None)
  Receive Date: 20120308
  Receipt Date: 20120227
  Transmission Date: 20120608
  Serious: Yes (Other)
  Sender: FDA-Public Use
  Company Number: US-RB-034482-12

PATIENT
  Age: 40 Year
  Sex: Female
  Weight: 62 kg

DRUGS (2)
  1. MUCINEX DM [Suspect]
     Indication: RESPIRATORY TRACT CONGESTION
     Route: 048
     Dates: start: 20120131
  2. ENJUVIA [Concomitant]
     Indication: HORMONE REPLACEMENT THERAPY

REACTIONS (9)
  - FEELING HOT [None]
  - RESPIRATORY ARREST [None]
  - ASTHENIA [None]
  - FLUSHING [None]
  - DIZZINESS [None]
  - LOSS OF CONSCIOUSNESS [None]
  - PANIC ATTACK [None]
  - CHEST PAIN [None]
  - NAUSEA [None]
